FAERS Safety Report 10752147 (Version 1)
Quarter: 2015Q1

REPORT INFORMATION
  Report Type: Spontaneous
  Country: US (occurrence: None)
  Receive Date: 20150129
  Receipt Date: 20150129
  Transmission Date: 20150721
  Serious: Yes (Other)
  Sender: FDA-Public Use
  Company Number: None

PATIENT
  Age: 8 Year
  Sex: Female
  Weight: 42.2 kg

DRUGS (1)
  1. LAMICTAL GENERIC [Suspect]
     Active Substance: LAMOTRIGINE
     Indication: EPILEPSY
     Dosage: 1, BID, ORAL
     Route: 048
     Dates: start: 20081001, end: 20090115

REACTIONS (2)
  - Seizure [None]
  - Vomiting [None]

NARRATIVE: CASE EVENT DATE: 20090114
